FAERS Safety Report 5534385-X (Version None)
Quarter: 2007Q4

REPORT INFORMATION
  Report Type: 
  Country: None (occurrence: None)
  Receive Date: 20071205
  Receipt Date: 20071127
  Transmission Date: 20080405
  Serious: Yes (Other)
  Sender: FDA-Public Use
  Company Number: PHEH2007US15283

PATIENT
  Sex: Female

DRUGS (2)
  1. HYDROCHLOROTHIAZIDE T08766+CAPS [Suspect]
     Indication: HYPERTENSION
     Dosage: 12.5 MG, QD
     Route: 048
  2. ATENOLOL [Suspect]
     Dosage: 25 MG, QD
     Route: 048

REACTIONS (1)
  - ANGINA PECTORIS [None]
